FAERS Safety Report 24237113 (Version 8)
Quarter: 2025Q1

REPORT INFORMATION
  Report Type: Report from Study
  Country: CA (occurrence: CA)
  Receive Date: 20240822
  Receipt Date: 20250318
  Transmission Date: 20250409
  Serious: Yes (Hospitalization, Other)
  Sender: AMGEN
  Company Number: CA-AMGEN-CANSL2024149893

PATIENT
  Age: 28 Year
  Sex: Male

DRUGS (15)
  1. AVSOLA [Suspect]
     Active Substance: INFLIXIMAB-AXXQ
     Indication: Crohn^s disease
     Dosage: 400 MILLIGRAM, Q4WK
     Route: 065
     Dates: start: 20220318
  2. AVSOLA [Suspect]
     Active Substance: INFLIXIMAB-AXXQ
     Dosage: 400 MILLIGRAM, Q4WK
     Route: 065
  3. AVSOLA [Suspect]
     Active Substance: INFLIXIMAB-AXXQ
     Dosage: 400 MILLIGRAM, Q4WK
     Route: 065
  4. AVSOLA [Suspect]
     Active Substance: INFLIXIMAB-AXXQ
     Dosage: 400 MILLIGRAM, Q4WK
     Route: 065
  5. ARANESP [Suspect]
     Active Substance: DARBEPOETIN ALFA
     Indication: Anaemia
     Route: 065
  6. ARANESP [Suspect]
     Active Substance: DARBEPOETIN ALFA
     Indication: IgA nephropathy
  7. AMLODIPINE [Concomitant]
     Active Substance: AMLODIPINE BESYLATE
  8. FUROSEMIDE [Concomitant]
     Active Substance: FUROSEMIDE
  9. PANTOPRAZOLE [Concomitant]
     Active Substance: PANTOPRAZOLE
  10. IRBESARTAN [Concomitant]
     Active Substance: IRBESARTAN
  11. SERTRALINE [Concomitant]
     Active Substance: SERTRALINE HYDROCHLORIDE
  12. IRON [Concomitant]
     Active Substance: IRON
     Route: 065
  13. REMICADE [Concomitant]
     Active Substance: INFLIXIMAB
  14. CALCIUM [Concomitant]
     Active Substance: CALCIUM
  15. QUETIAPINE [Concomitant]
     Active Substance: QUETIAPINE

REACTIONS (16)
  - Gastrointestinal vascular malformation haemorrhagic [Unknown]
  - Renal failure [Unknown]
  - Intestinal haemorrhage [Unknown]
  - Immunosuppression [Unknown]
  - Fistula [Not Recovered/Not Resolved]
  - Abscess limb [Unknown]
  - Off label use [Unknown]
  - Anaemia [Unknown]
  - Abdominal pain upper [Recovered/Resolved]
  - Faeces soft [Unknown]
  - Wound complication [Unknown]
  - Swelling [Unknown]
  - Lymphadenopathy [Unknown]
  - Fracture [Unknown]
  - Blood test abnormal [Unknown]
  - Arteriovenous fistula operation [Unknown]

NARRATIVE: CASE EVENT DATE: 20220318
